FAERS Safety Report 4366750-0 (Version None)
Quarter: 2004Q2

REPORT INFORMATION
  Report Type: 
  Country: None (occurrence: None)
  Receive Date: 20040526
  Receipt Date: 20040526
  Transmission Date: 20050107
  Serious: Yes (Death)
  Sender: FDA-Public Use
  Company Number: None

PATIENT
  Age: 72 Year
  Sex: Female
  Weight: 56.3 kg

DRUGS (21)
  1. MYLOTARG [Suspect]
     Indication: ACUTE LEUKAEMIA
     Dosage: 9.7 MG 2 D 1 INF IV
     Route: 042
     Dates: start: 20040427, end: 20040505
  2. CYTOSAR-U [Suspect]
     Dosage: 325 MG 24 H INF/D/IV
     Route: 042
     Dates: start: 20040428, end: 20040504
  3. ALLOPURINOL [Concomitant]
  4. OCYCONTIN [Concomitant]
  5. DOCUSATE [Concomitant]
  6. TEMAZEPAM [Concomitant]
  7. ALENDRONATE SODIUM [Concomitant]
  8. CALCIUM CARBONATE [Concomitant]
  9. VIT D [Concomitant]
  10. APAP TAB [Concomitant]
  11. DIPHENHYDRAMINE HCL [Concomitant]
  12. DEXAMETHASONE [Concomitant]
  13. MEGESTROL ACETATE [Concomitant]
  14. CEFEPIME [Concomitant]
  15. VANCOMYCIN [Concomitant]
  16. PRIMAXIN [Concomitant]
  17. CANCIDAS [Concomitant]
  18. NEUPOGEN [Concomitant]
  19. PRIMAXIN [Concomitant]
  20. ZOSYN [Concomitant]
  21. TOBRMYCIN [Concomitant]

REACTIONS (13)
  - ABDOMINAL SEPSIS [None]
  - ACTIVITIES OF DAILY LIVING IMPAIRED [None]
  - ASTHENIA [None]
  - CANDIDA SEPSIS [None]
  - COMA [None]
  - FATIGUE [None]
  - HEPATOSPLENOMEGALY [None]
  - HYPOTONIA [None]
  - MALAISE [None]
  - MARKEDLY REDUCED DIETARY INTAKE [None]
  - PANCREATITIS [None]
  - PANCYTOPENIA [None]
  - SEPSIS [None]
